FAERS Safety Report 8274251-2 (Version None)
Quarter: 2012Q2

REPORT INFORMATION
  Report Type: 
  Country: None (occurrence: None)
  Receive Date: 20120409
  Receipt Date: 20110609
  Transmission Date: 20120825
  Serious: Yes (Life-Threatening)
  Sender: FDA-Public Use
  Company Number: GB-DEXPHARM-20110738

PATIENT
  Age: 49 Year
  Sex: Male

DRUGS (9)
  1. CHLORHEXIDINE GLUCONATE [Suspect]
  2. CIPROFLOXACIN HYDROCHLORIDE [Concomitant]
  3. GENTAMICIN [Concomitant]
  4. PROPOFOL [Concomitant]
  5. REMIFENTANIL [Concomitant]
  6. ONDANSETRON [Concomitant]
  7. BUTYLBROMIDE [Concomitant]
  8. DIAMORPHINE [Concomitant]
  9. HYOSCINE [Concomitant]

REACTIONS (7)
  - PULSELESS ELECTRICAL ACTIVITY [None]
  - ANAPHYLACTIC REACTION [None]
  - TACHYCARDIA [None]
  - TROPONIN T INCREASED [None]
  - VENTRICULAR FIBRILLATION [None]
  - OXYGEN SATURATION DECREASED [None]
  - LATEX ALLERGY [None]
